FAERS Safety Report 4672939-3 (Version None)
Quarter: 2005Q2

REPORT INFORMATION
  Report Type: 
  Country: None (occurrence: None)
  Receive Date: 20050524
  Receipt Date: 20050222
  Transmission Date: 20051028
  Serious: Yes (Death)
  Sender: FDA-Public Use
  Company Number: US-MERCK-0502USA03174

PATIENT
  Age: 49 Year
  Sex: Male
  Weight: 93 kg

DRUGS (9)
  1. VIOXX [Suspect]
     Indication: ARTHRITIS
     Route: 048
     Dates: start: 20031101, end: 20040109
  2. VIOXX [Suspect]
     Route: 048
     Dates: end: 20040109
  3. VIOXX [Suspect]
     Indication: OSTEOARTHRITIS
     Route: 048
     Dates: start: 20031101, end: 20040109
  4. VIOXX [Suspect]
     Route: 048
     Dates: end: 20040109
  5. NEXIUM [Concomitant]
     Route: 065
  6. TEGRETOL [Concomitant]
     Indication: CONVULSION
     Route: 065
     Dates: start: 19980101, end: 20040101
  7. LORAZEPAM [Concomitant]
     Indication: CONVULSION
     Route: 065
  8. PROZAC [Concomitant]
     Indication: CONVULSION
     Route: 065
  9. ZOLOFT [Concomitant]
     Indication: CONVULSION
     Route: 065

REACTIONS (7)
  - ACUTE MYOCARDIAL INFARCTION [None]
  - BLOOD CHOLESTEROL INCREASED [None]
  - BLOOD TRIGLYCERIDES INCREASED [None]
  - CONGESTIVE CARDIOMYOPATHY [None]
  - CORONARY ARTERY DISEASE [None]
  - CORONARY ARTERY THROMBOSIS [None]
  - GASTROOESOPHAGEAL REFLUX DISEASE [None]
